FAERS Safety Report 4878367-X (Version None)
Quarter: 2005Q4

REPORT INFORMATION
  Report Type: 
  Country: None (occurrence: None)
  Receive Date: 20051206
  Receipt Date: 20050907
  Transmission Date: 20060501
  Serious: No
  Sender: FDA-Public Use
  Company Number: USA0509107224

PATIENT
  Age: 46 Year
  Sex: Female
  Weight: 67 kg

DRUGS (4)
  1. CYMBALTA [Suspect]
     Indication: DEPRESSION
     Dosage: 60 MG DAY
     Dates: start: 20050826
  2. LEXAPRO [Concomitant]
  3. SUDAFED 12 HOUR [Concomitant]
  4. FLONASE [Concomitant]

REACTIONS (7)
  - AFFECT LABILITY [None]
  - AGITATION [None]
  - ANGER [None]
  - CRYING [None]
  - IRRITABILITY [None]
  - MIGRAINE [None]
  - SOCIAL AVOIDANT BEHAVIOUR [None]
